FAERS Safety Report 5286823-8 (Version None)
Quarter: 2007Q1

REPORT INFORMATION
  Report Type: 
  Country: None (occurrence: None)
  Receive Date: 20070116
  Receipt Date: 20061110
  Transmission Date: 20070707
  Serious: No
  Sender: FDA-Public Use
  Company Number: 2006SP004005

PATIENT
  Age: 50 Year
  Sex: Female
  Weight: 56.6996 kg

DRUGS (7)
  1. LUNESTA [Suspect]
     Indication: INSOMNIA
     Dosage: SEE IMAGE
     Route: 048
     Dates: start: 20061001, end: 20061101
  2. LUNESTA [Suspect]
     Indication: INSOMNIA
     Dosage: SEE IMAGE
     Route: 048
     Dates: start: 20061101
  3. PROZAC [Concomitant]
  4. DIAZEPAM [Concomitant]
  5. CYTOMEL [Concomitant]
  6. STOOL SOFTENER [Concomitant]
  7. TRAZODONE HCL [Concomitant]

REACTIONS (1)
  - BLOOD PRESSURE INCREASED [None]
